FAERS Safety Report 19967372 (Version 10)
Quarter: 2022Q1

REPORT INFORMATION
  Report Type: Report from Study
  Country: US (occurrence: None)
  Receive Date: 20211019
  Receipt Date: 20220318
  Transmission Date: 20220423
  Serious: Yes (Other)
  Sender: FDA-Public Use
  Company Number: US-ROCHE-2895576

PATIENT
  Age: 77 Year
  Sex: Female
  Weight: 70.7 kg

DRUGS (45)
  1. RANIBIZUMAB [Suspect]
     Active Substance: RANIBIZUMAB
     Indication: Neovascular age-related macular degeneration
     Dosage: 100 MG/ML
     Route: 050
     Dates: start: 20210105
  2. RANIBIZUMAB [Suspect]
     Active Substance: RANIBIZUMAB
  3. RANIBIZUMAB [Suspect]
     Active Substance: RANIBIZUMAB
  4. RANIBIZUMAB [Suspect]
     Active Substance: RANIBIZUMAB
  5. RANIBIZUMAB [Suspect]
     Active Substance: RANIBIZUMAB
  6. RANIBIZUMAB [Suspect]
     Active Substance: RANIBIZUMAB
  7. ATORVASTATIN [Concomitant]
     Active Substance: ATORVASTATIN
     Indication: Hyperlipidaemia
     Route: 048
     Dates: start: 2011
  8. CARVEDILOL [Concomitant]
     Active Substance: CARVEDILOL
     Indication: Hypertension
     Dates: start: 2011
  9. SERTRALINE [Concomitant]
     Active Substance: SERTRALINE HYDROCHLORIDE
     Indication: Depression
     Route: 048
     Dates: start: 2011
  10. RESTASIS [Concomitant]
     Active Substance: CYCLOSPORINE
     Indication: Dry eye
     Route: 061
     Dates: start: 20180821
  11. SYNTHROID [Concomitant]
     Active Substance: LEVOTHYROXINE SODIUM
     Indication: Post procedural hypothyroidism
     Route: 048
     Dates: start: 20170115
  12. COENZYME Q10 [Concomitant]
     Active Substance: DIETARY SUPPLEMENT\UBIDECARENONE
     Route: 048
     Dates: start: 20181128
  13. CALCIUM MAGNESIUM AND ZINC [Concomitant]
     Route: 048
     Dates: start: 20181128
  14. POTASSIUM [Concomitant]
     Active Substance: POTASSIUM
     Route: 048
     Dates: start: 2011
  15. ZYRTEC [Concomitant]
     Active Substance: CETIRIZINE HYDROCHLORIDE
     Indication: Seasonal allergy
     Route: 048
     Dates: start: 2011
  16. BREO ELLIPTA [Concomitant]
     Active Substance: FLUTICASONE FUROATE\VILANTEROL TRIFENATATE
     Indication: Asthma
     Route: 055
     Dates: start: 2011
  17. ESTRACE [Concomitant]
     Active Substance: ESTRADIOL
     Indication: Atrophic vulvovaginitis
     Dosage: OTHER
     Route: 061
     Dates: start: 2011
  18. VITAMIN C [Concomitant]
     Active Substance: ASCORBIC ACID
     Route: 048
     Dates: start: 20181128
  19. PANTOPRAZOLE [Concomitant]
     Active Substance: PANTOPRAZOLE
     Indication: Gastrooesophageal reflux disease
     Route: 048
     Dates: start: 20190724
  20. AMLODIPINE [Concomitant]
     Active Substance: AMLODIPINE BESYLATE
     Indication: Hypertension
     Route: 048
     Dates: start: 20190730
  21. MIRTAZAPINE [Concomitant]
     Active Substance: MIRTAZAPINE
     Indication: Insomnia
     Route: 048
     Dates: start: 20190730
  22. MONTELUKAST [Concomitant]
     Active Substance: MONTELUKAST SODIUM
     Indication: Asthma
     Route: 048
     Dates: start: 20190730
  23. IPRATROPIUM [Concomitant]
     Active Substance: IPRATROPIUM
     Indication: Asthma
     Dosage: PUFF
     Route: 055
     Dates: start: 20190730
  24. ONDANSETRON [Concomitant]
     Active Substance: ONDANSETRON
     Indication: Nausea
     Route: 048
     Dates: start: 20190730
  25. MUCINEX [Concomitant]
     Active Substance: GUAIFENESIN
     Indication: Wheezing
     Route: 048
     Dates: start: 20191107
  26. TESSALON [Concomitant]
     Active Substance: BENZONATATE
     Indication: Wheezing
     Route: 048
     Dates: start: 20191107
  27. BENZONATATE [Concomitant]
     Active Substance: BENZONATATE
     Indication: Seasonal allergy
     Route: 048
     Dates: start: 2018
  28. PREGABALIN [Concomitant]
     Active Substance: PREGABALIN
     Indication: Osteoarthritis
     Route: 048
     Dates: start: 20210909
  29. CYCLOGEL [Concomitant]
     Indication: Conjunctival retraction
     Route: 047
     Dates: start: 20211025, end: 20211122
  30. XIIDRA [Concomitant]
     Active Substance: LIFITEGRAST
     Indication: Dry eye
     Route: 047
     Dates: start: 20211103, end: 20211103
  31. INFLUENZA VIRUS VACCINE [Concomitant]
     Active Substance: INFLUENZA VIRUS VACCINE
     Indication: Influenza immunisation
     Route: 030
     Dates: start: 20211122, end: 20211122
  32. AZITHROMYCIN [Concomitant]
     Active Substance: AZITHROMYCIN
     Indication: Pneumonia
     Route: 048
     Dates: start: 20211109, end: 20211116
  33. LEVOFLOXACIN [Concomitant]
     Active Substance: LEVOFLOXACIN
     Indication: Pneumonia
     Route: 048
     Dates: start: 20211116, end: 20211118
  34. ROCEPHIN [Concomitant]
     Active Substance: CEFTRIAXONE SODIUM
     Indication: Pneumonia
     Route: 042
     Dates: start: 20211109, end: 20211116
  35. OXYGEN [Concomitant]
     Active Substance: OXYGEN
     Indication: Pneumonia
     Route: 045
     Dates: start: 20211109, end: 20211116
  36. OXYGEN [Concomitant]
     Active Substance: OXYGEN
     Indication: Bronchitis
     Route: 045
     Dates: start: 20220120
  37. PROMETHAZINE [Concomitant]
     Active Substance: PROMETHAZINE HYDROCHLORIDE
     Indication: Pneumonia
     Dosage: TBSP
     Route: 048
     Dates: start: 20211109, end: 20211129
  38. TORADOL [Concomitant]
     Active Substance: KETOROLAC TROMETHAMINE
     Indication: Pneumonia
     Route: 048
     Dates: start: 20211109, end: 20211110
  39. OMNICEF [Concomitant]
     Active Substance: CEFDINIR
     Indication: Bronchitis
     Route: 048
     Dates: start: 20220121, end: 20220128
  40. PREDNISONE [Concomitant]
     Active Substance: PREDNISONE
     Indication: Bronchitis
     Route: 048
     Dates: start: 20220121, end: 20220201
  41. ALBUTEROL [Concomitant]
     Active Substance: ALBUTEROL
     Indication: Bronchitis
     Route: 048
     Dates: start: 20220120
  42. PROMETHAZINE WITH CODEINE [Concomitant]
     Active Substance: CODEINE PHOSPHATE\PROMETHAZINE HYDROCHLORIDE
     Indication: Bronchitis
     Route: 048
     Dates: start: 20220119
  43. OXYGEN [Concomitant]
     Active Substance: OXYGEN
     Indication: Bronchitis
     Route: 045
     Dates: start: 20220120
  44. DUREZOL [Concomitant]
     Active Substance: DIFLUPREDNATE
     Dates: start: 20220212, end: 20220228
  45. RANIBIZUMAB [Concomitant]
     Active Substance: RANIBIZUMAB
     Indication: Neovascular age-related macular degeneration
     Dosage: 10 MG/ML
     Route: 050
     Dates: start: 20210105

REACTIONS (1)
  - Conjunctival erosion [Not Recovered/Not Resolved]

NARRATIVE: CASE EVENT DATE: 20210816
